FAERS Safety Report 12177522 (Version 1)
Quarter: 2016Q1

REPORT INFORMATION
  Report Type: Spontaneous
  Country: US (occurrence: US)
  Receive Date: 20160314
  Receipt Date: 20160314
  Transmission Date: 20160526
  Serious: Yes (Other)
  Sender: FDA-Public Use
  Company Number: US-BAYER-2016-042991

PATIENT
  Age: 72 Year
  Sex: Female
  Weight: 58.95 kg

DRUGS (2)
  1. BAYER ASPIRIN REGIMEN REGULAR 325 MG STRENGTH [Suspect]
     Active Substance: ASPIRIN
     Dosage: 1 DF, QD
     Route: 048
     Dates: start: 201505
  2. BAYER LOW DOSE [Suspect]
     Active Substance: ASPIRIN
     Dosage: 1 DF, QD
     Dates: end: 201505

REACTIONS (3)
  - Off label use [None]
  - Cerebrovascular accident [None]
  - Product use issue [None]

NARRATIVE: CASE EVENT DATE: 201504
